FAERS Safety Report 10034774 (Version 2)
Quarter: 2014Q1

REPORT INFORMATION
  Report Type: Spontaneous
  Country: MY (occurrence: MY)
  Receive Date: 20140325
  Receipt Date: 20140325
  Transmission Date: 20141002
  Serious: Yes (Death)
  Sender: FDA-Public Use
  Company Number: MY-PFIZER INC-2014021861

PATIENT
  Age: 68 Year
  Sex: Male
  Weight: 65 kg

DRUGS (28)
  1. VFEND [Suspect]
     Indication: ASPERGILLUS INFECTION
     Dosage: 200 MG, 2X/DAY
     Route: 048
     Dates: start: 20120725, end: 20120804
  2. MYFORTIC [Concomitant]
     Indication: TRANSPLANT REJECTION
     Dosage: 360 MG, 2X/DAY
     Dates: start: 20120717, end: 20120719
  3. MYFORTIC [Concomitant]
     Dosage: 180 MG, 2X/DAY
     Dates: start: 20120719, end: 20120730
  4. LACTULOSE [Concomitant]
     Indication: CONSTIPATION
     Dosage: 15 ML, 1X/DAY, AT NIGHT
     Dates: start: 20120722, end: 20120726
  5. DIGOXIN [Concomitant]
     Indication: ATRIAL FIBRILLATION
     Dosage: 0.125 MG, 1X/DAY
     Dates: start: 20120728, end: 20120731
  6. DIGOXIN [Concomitant]
     Dosage: 0.062 MG, 1X/DAY
     Dates: start: 20120731, end: 20120804
  7. NYSTATIN [Concomitant]
     Indication: ORAL CANDIDIASIS
     Dosage: 250000 U, 4X/DAY
     Dates: start: 20120723, end: 20120727
  8. FERROUS FUMARATE [Concomitant]
     Indication: ANAEMIA
     Dosage: 200 MG, 3X/DAY
     Dates: start: 20120723, end: 20120804
  9. ALFACALCIDOL [Concomitant]
  10. VALGANCICLOVIR [Concomitant]
     Indication: CYTOMEGALOVIRUS INFECTION
     Dosage: 450 MG, 1X/DAY
     Dates: start: 20120802, end: 20120804
  11. PANTOPRAZOLE [Concomitant]
     Indication: GASTRIC ULCER
     Dosage: 40 MG, 1X/DAY
     Dates: start: 20120717, end: 20120804
  12. BISOPROLOL [Concomitant]
     Indication: ATRIAL FIBRILLATION
     Dosage: 1.5 MG, 1X/DAY
     Dates: start: 20120717, end: 20120804
  13. PREDNISOLONE [Concomitant]
     Indication: TRANSPLANT REJECTION
     Dosage: 7.5 MG, 1X/DAY
     Dates: start: 20120717, end: 20120723
  14. PREDNISOLONE [Concomitant]
     Dosage: 10 MG, 1X/DAY
     Dates: start: 20120724, end: 20120726
  15. PREDNISOLONE [Concomitant]
     Dosage: 15 MG, 1X/DAY
     Dates: start: 20120726, end: 20120729
  16. HYDROCORTISONE [Concomitant]
     Indication: TRANSPLANT REJECTION
     Dosage: 50 MG, 3X/DAY
     Route: 042
     Dates: start: 20120726, end: 20120802
  17. TACROLIMUS [Concomitant]
     Indication: TRANSPLANT REJECTION
     Dosage: 0.5 MG, 1X/DAY, IN MORNING
     Dates: start: 20120717, end: 20120722
  18. TACROLIMUS [Concomitant]
     Dosage: 0.5 MG, 1X/DAY, AT NIGHT
     Dates: start: 20120716, end: 20120722
  19. TACROLIMUS [Concomitant]
     Dosage: 0.5 MG, 1X/DAY
     Dates: start: 20120724, end: 20120802
  20. MECOBALAMIN [Concomitant]
  21. BROMHEXINE [Concomitant]
     Indication: SECRETION DISCHARGE
     Dosage: 8 MG, 3X/DAY
     Dates: start: 20120721, end: 20120724
  22. BENADRYL [Concomitant]
     Indication: COUGH
     Dosage: 15 ML, 3X/DAY
     Dates: start: 20120719, end: 20120720
  23. VITAMIN B12 [Concomitant]
     Indication: ANAEMIA
     Dosage: 1/1 ONCE A DAY
     Dates: start: 20120723, end: 20120804
  24. FOLIC ACID [Concomitant]
     Indication: ANAEMIA
     Dosage: 1/1 ONCE A DAY
     Dates: start: 20120723, end: 20120804
  25. MAXOLON [Concomitant]
     Indication: NAUSEA
     Dosage: 10 MG, 3X/DAY
     Route: 042
     Dates: start: 20120726, end: 20120726
  26. MULTIVITAMIN [Concomitant]
     Indication: SUPPLEMENTATION THERAPY
     Dosage: 1 UNK, 1X/DAY
     Dates: start: 20120726, end: 20120804
  27. SLOW-K [Concomitant]
     Indication: HYPOKALAEMIA
     Dosage: 1.2 G, 2X/DAY
     Dates: start: 20120729, end: 20120804
  28. CALCIDOL [Concomitant]
     Indication: HYPOCALCAEMIA
     Dosage: 1 UG, UNK
     Dates: start: 20120730, end: 20120804

REACTIONS (1)
  - Blood sodium decreased [Fatal]
